FAERS Safety Report 11894225 (Version 2)
Quarter: 2016Q1

REPORT INFORMATION
  Report Type: Spontaneous
  Country: US (occurrence: US)
  Receive Date: 20160107
  Receipt Date: 20160301
  Transmission Date: 20160526
  Serious: Yes (Hospitalization, Other)
  Sender: FDA-Public Use
  Company Number: US-ASTRAZENECA-2016SE00214

PATIENT
  Age: 28263 Day
  Sex: Female

DRUGS (5)
  1. SPIRIVA [Concomitant]
     Active Substance: TIOTROPIUM BROMIDE MONOHYDRATE
     Indication: CHRONIC OBSTRUCTIVE PULMONARY DISEASE
  2. AVASTIN [Concomitant]
     Active Substance: BEVACIZUMAB
     Indication: EYE DISORDER
     Dosage: EVERY 8 TO 10 WEEKS
  3. SYMBICORT [Suspect]
     Active Substance: BUDESONIDE\FORMOTEROL FUMARATE DIHYDRATE
     Dosage: 160/4.5 MCG, 2 PUFFS, TWO TIMES A DAY
     Route: 055
  4. LORAZEPAM. [Concomitant]
     Active Substance: LORAZEPAM
     Indication: ANXIETY
     Dosage: 2 MG EVERY 6 HOURS AS NEEDED FOR A MAXIMUM OF 4 TABS A DAY.
  5. OXYGEN. [Concomitant]
     Active Substance: OXYGEN

REACTIONS (11)
  - Fall [Unknown]
  - Osteoporosis [Unknown]
  - Disturbance in attention [Unknown]
  - Product quality issue [Unknown]
  - Dyspnoea [Unknown]
  - Anxiety [Unknown]
  - Lung disorder [Unknown]
  - Visual acuity reduced [Unknown]
  - Rib fracture [Unknown]
  - Back disorder [Unknown]
  - Visual field defect [Unknown]

NARRATIVE: CASE EVENT DATE: 20150114
